FAERS Safety Report 19887388 (Version 1)
Quarter: 2021Q3

REPORT INFORMATION
  Report Type: Spontaneous
  Country: US (occurrence: US)
  Receive Date: 20210927
  Receipt Date: 20210927
  Transmission Date: 20211014
  Serious: No
  Sender: FDA-Public Use
  Company Number: US-GLAXOSMITHKLINE-USCH2021065399

PATIENT
  Sex: Female

DRUGS (1)
  1. ABREVA [Suspect]
     Active Substance: DOCOSANOL
     Indication: PARAESTHESIA
     Dosage: UNK

REACTIONS (4)
  - Lip pain [Unknown]
  - Lip swelling [Unknown]
  - Condition aggravated [Unknown]
  - Drug ineffective [Unknown]
